FAERS Safety Report 8000352-X (Version None)
Quarter: 2011Q4

REPORT INFORMATION
  Report Type: 
  Country: None (occurrence: None)
  Receive Date: 20111222
  Receipt Date: 20111213
  Transmission Date: 20120403
  Serious: Yes (Hospitalization)
  Sender: FDA-Public Use
  Company Number: US-BAYER-2011-108809

PATIENT
  Age: 37 Year
  Sex: Female
  Weight: 71.655 kg

DRUGS (2)
  1. YASMIN [Suspect]
     Dosage: UNK
     Route: 048
     Dates: start: 20070514, end: 20080514
  2. VENLAFAXINE [Concomitant]
     Dosage: UNK
     Dates: start: 20020101

REACTIONS (3)
  - PULMONARY EMBOLISM [None]
  - INJURY [None]
  - DEEP VEIN THROMBOSIS [None]
